FAERS Safety Report 23947692 (Version 1)
Quarter: 2024Q2

REPORT INFORMATION
  Report Type: Spontaneous
  Country: AR (occurrence: AR)
  Receive Date: 20240606
  Receipt Date: 20240606
  Transmission Date: 20240715
  Serious: Yes (Other)
  Sender: FDA-Public Use
  Company Number: AR-SANDOZ-SDZ2024AR055325

PATIENT
  Age: 69 Year
  Sex: Female

DRUGS (1)
  1. HYRIMOZ [Suspect]
     Active Substance: ADALIMUMAB-ADAZ
     Indication: Psoriatic arthropathy
     Dosage: 40 MG, BID
     Route: 058
     Dates: start: 20240415

REACTIONS (1)
  - Cervical discharge [Unknown]

NARRATIVE: CASE EVENT DATE: 20240604
